FAERS Safety Report 8824958 (Version 2)
Quarter: 2014Q2

REPORT INFORMATION
  Report Type: Spontaneous
  Country: US (occurrence: US)
  Receive Date: 20121004
  Receipt Date: 20131024
  Transmission Date: 20141212
  Serious: No
  Sender: FDA-Public Use
  Company Number: US-PFIZER INC-2012241907

PATIENT
  Age: 56 Year
  Sex: Female
  Weight: 66.21 kg

DRUGS (6)
  1. PREMPRO [Suspect]
     Indication: HOT FLUSH
     Dosage: UNK, 1X/DAY
     Route: 048
     Dates: end: 2003
  2. PREMPRO [Suspect]
     Indication: HORMONE REPLACEMENT THERAPY
  3. PREMARIN VAGINAL CREAM [Suspect]
     Indication: VULVOVAGINAL DRYNESS
     Dosage: UNK, THREE TIMES A WEEK
     Route: 067
     Dates: start: 2003
  4. PREMARIN VAGINAL CREAM [Suspect]
     Indication: DYSPAREUNIA
     Dosage: UNK,EITHER TWO TIMES IN A WEEK OR WEEKLY
     Route: 067
  5. LEVOTHYROXINE [Concomitant]
     Indication: HYPOTHYROIDISM
     Dosage: 125 UG, 1X/DAY
  6. CELEBREX [Concomitant]
     Indication: SCIATICA
     Dosage: 200 MG, 1X/DAY
     Route: 048

REACTIONS (6)
  - Hot flush [Unknown]
  - Vulvovaginal pain [Unknown]
  - Vulvovaginal dryness [Unknown]
  - Inappropriate schedule of drug administration [Unknown]
  - Incorrect dose administered [Unknown]
  - Medication residue present [Unknown]
